FAERS Safety Report 13095915 (Version 1)
Quarter: 2017Q1

REPORT INFORMATION
  Report Type: Spontaneous
  Country: US (occurrence: US)
  Receive Date: 20170109
  Receipt Date: 20170109
  Transmission Date: 20170428
  Serious: No
  Sender: FDA-Public Use
  Company Number: US-GLENMARK PHARMACEUTICALS-2016GMK021935

PATIENT

DRUGS (1)
  1. RIZATRIPTAN BENZOATE. [Suspect]
     Active Substance: RIZATRIPTAN BENZOATE
     Indication: MIGRAINE
     Dosage: 10 MG, QD (AS NEEDED)
     Route: 048

REACTIONS (4)
  - Product substitution issue [Unknown]
  - Product blister packaging issue [Unknown]
  - Drug ineffective [Unknown]
  - Product solubility abnormal [Unknown]
